FAERS Safety Report 5728813-4 (Version None)
Quarter: 2008Q2

REPORT INFORMATION
  Report Type: 
  Country: None (occurrence: None)
  Receive Date: 20080506
  Receipt Date: 20080424
  Transmission Date: 20081010
  Serious: Yes (Other)
  Sender: FDA-Public Use
  Company Number: BE-ROCHE-561479

PATIENT
  Age: 58 Year
  Sex: Female

DRUGS (2)
  1. BONIVA [Suspect]
     Indication: OSTEOPOROSIS
     Route: 048
     Dates: start: 20080201, end: 20080401
  2. EFFEXOR [Suspect]
     Route: 065
     Dates: start: 20071201, end: 20080401

REACTIONS (1)
  - HEPATITIS TOXIC [None]
